FAERS Safety Report 12305533 (Version 2)
Quarter: 2016Q3

REPORT INFORMATION
  Report Type: Spontaneous
  Country: US (occurrence: US)
  Receive Date: 20160426
  Receipt Date: 20160805
  Transmission Date: 20161109
  Serious: Yes (Death, Hospitalization, Other)
  Sender: FDA-Public Use
  Company Number: US-DRREDDYS-USA/USA/16/0078940

PATIENT
  Age: 73 Year
  Sex: Female

DRUGS (4)
  1. ENTACAPONE. [Suspect]
     Active Substance: ENTACAPONE
     Indication: PARKINSON^S DISEASE
     Route: 065
  2. LEVODOPA [Suspect]
     Active Substance: LEVODOPA
     Indication: PARKINSON^S DISEASE
     Route: 065
  3. LEVODOPA [Suspect]
     Active Substance: LEVODOPA
     Route: 065
  4. ROPINIROLE. [Suspect]
     Active Substance: ROPINIROLE
     Indication: PARKINSON^S DISEASE
     Route: 065

REACTIONS (9)
  - Gait disturbance [Unknown]
  - Cognitive disorder [Unknown]
  - Muscle rigidity [Unknown]
  - Progressive supranuclear palsy [Fatal]
  - Dyskinesia [Unknown]
  - Opticokinetic nystagmus tests abnormal [Unknown]
  - Bradykinesia [Unknown]
  - Product quality issue [Unknown]
  - Drug ineffective [Unknown]
